FAERS Safety Report 17750997 (Version 1)
Quarter: 2020Q2

REPORT INFORMATION
  Report Type: Spontaneous
  Country: IT (occurrence: IT)
  Receive Date: 20200506
  Receipt Date: 20200506
  Transmission Date: 20200714
  Serious: Yes (Other)
  Sender: FDA-Public Use
  Company Number: NVSC2020IT122058

PATIENT
  Age: 40 Year
  Sex: Female

DRUGS (1)
  1. LEVOFLOXACINA SANDOZ [Suspect]
     Active Substance: LEVOFLOXACIN
     Indication: INFECTION
     Dosage: 750 MG, CYCLIC
     Route: 048

REACTIONS (1)
  - Respiration abnormal [Recovered/Resolved]
